FAERS Safety Report 7164275-0 (Version None)
Quarter: 2010Q4

REPORT INFORMATION
  Report Type: 
  Country: None (occurrence: None)
  Receive Date: 20101215
  Receipt Date: 20101213
  Transmission Date: 20110411
  Serious: Yes (Life-Threatening, Hospitalization)
  Sender: FDA-Public Use
  Company Number: FR-BRISTOL-MYERS SQUIBB COMPANY-15440639

PATIENT
  Age: 3 Decade
  Sex: Female

DRUGS (8)
  1. ABILIFY [Suspect]
     Indication: ASTHENIA
     Dosage: INCREASED TO 15MG AFTER 15 DAYS
     Dates: start: 20101130
  2. ABILIFY [Suspect]
     Indication: AUTISM SPECTRUM DISORDER
     Dosage: INCREASED TO 15MG AFTER 15 DAYS
     Dates: start: 20101130
  3. ABILIFY [Suspect]
     Indication: MENTAL RETARDATION
     Dosage: INCREASED TO 15MG AFTER 15 DAYS
     Dates: start: 20101130
  4. LEVOTHYROX [Concomitant]
     Indication: HYPOTHYROIDISM
  5. KEPPRA [Concomitant]
     Indication: EPILEPSY
  6. TEGRETOL [Concomitant]
     Indication: EPILEPSY
  7. TOPIRAMATE [Concomitant]
     Indication: EPILEPSY
  8. LYSANXIA [Concomitant]

REACTIONS (1)
  - HYPOTHERMIA [None]
